FAERS Safety Report 5895519-0 (Version None)
Quarter: 2008Q3

REPORT INFORMATION
  Report Type: 
  Country: None (occurrence: None)
  Receive Date: 20080924
  Receipt Date: 20080915
  Transmission Date: 20090109
  Serious: Yes (Other)
  Sender: FDA-Public Use
  Company Number: US-GILEAD-2008-0018152

PATIENT
  Age: 28 Year
  Sex: Female

DRUGS (3)
  1. TRUVADA [Suspect]
     Route: 048
  2. KALETRA [Suspect]
     Route: 048
  3. RETROVIR [Suspect]
     Route: 048
     Dates: start: 20080220

REACTIONS (1)
  - STILLBIRTH [None]
